FAERS Safety Report 4267038-9 (Version None)
Quarter: 2004Q1

REPORT INFORMATION
  Report Type: 
  Country: None (occurrence: None)
  Receive Date: 20040107
  Receipt Date: 20031228
  Transmission Date: 20041129
  Serious: Yes (Other)
  Sender: FDA-Public Use
  Company Number: 2003127371

PATIENT
  Age: 2 Month
  Sex: Female

DRUGS (2)
  1. ZYRTEC [Suspect]
     Indication: ILL-DEFINED DISORDER
     Dosage: 0.6 MG (BID), ORAL
     Route: 048
     Dates: start: 20031016, end: 20031223
  2. CEPHALEXIN [Concomitant]

REACTIONS (10)
  - ABDOMINAL PAIN UPPER [None]
  - CONDITION AGGRAVATED [None]
  - CRYING [None]
  - DEVELOPMENTAL DELAY [None]
  - GASTROOESOPHAGEAL REFLUX DISEASE [None]
  - HYPERSOMNIA [None]
  - MARKEDLY REDUCED DIETARY INTAKE [None]
  - MEDICATION ERROR [None]
  - PAIN [None]
  - VESICOURETERIC REFLUX [None]
